FAERS Safety Report 6558383-2 (Version None)
Quarter: 2010Q1

REPORT INFORMATION
  Report Type: 
  Country: None (occurrence: None)
  Receive Date: 20100129
  Receipt Date: 20100125
  Transmission Date: 20100710
  Serious: Yes (Hospitalization)
  Sender: FDA-Public Use
  Company Number: US-MYLANLABS-2010S1000136

PATIENT
  Age: 55 Year
  Sex: Female
  Weight: 62.14 kg

DRUGS (6)
  1. LEVOTHYROXINE SODIUM [Suspect]
     Indication: HYPOTHYROIDISM
     Route: 048
     Dates: start: 20091001, end: 20091101
  2. LEVOTHYROXINE SODIUM [Suspect]
     Indication: GASTROINTESTINAL HYPOMOTILITY
     Route: 048
     Dates: start: 20091001, end: 20091101
  3. LEVOTHYROXINE SODIUM [Suspect]
     Indication: MUCOSAL DRYNESS
     Route: 048
     Dates: start: 20091001, end: 20091101
  4. LEVOTHYROXINE SODIUM [Suspect]
     Indication: DRY SKIN
     Route: 048
     Dates: start: 20091001, end: 20091101
  5. LEVOTHYROXINE SODIUM [Suspect]
     Indication: CONSTIPATION
     Route: 048
     Dates: start: 20091001, end: 20091101
  6. ESTRADIOL [Concomitant]
     Indication: HORMONE REPLACEMENT THERAPY

REACTIONS (11)
  - CONSTIPATION [None]
  - DECREASED APPETITE [None]
  - DRUG INEFFECTIVE [None]
  - DRY SKIN [None]
  - GASTROINTESTINAL HYPOMOTILITY [None]
  - HYPOTHYROIDISM [None]
  - INTESTINAL ULCER [None]
  - MUCOSAL DRYNESS [None]
  - NAUSEA [None]
  - SALIVA ALTERED [None]
  - VOMITING [None]
